FAERS Safety Report 17248107 (Version 2)
Quarter: 2023Q1

REPORT INFORMATION
  Report Type: Spontaneous
  Country: JP (occurrence: JP)
  Receive Date: 20200108
  Receipt Date: 20230128
  Transmission Date: 20230418
  Serious: Yes (Other)
  Sender: FDA-Public Use
  Company Number: JP-ABBVIE-20K-087-3221961-00

PATIENT
  Sex: Female

DRUGS (1)
  1. LEUPROLIDE ACETATE [Suspect]
     Active Substance: LEUPROLIDE ACETATE
     Indication: Adenomyosis
     Route: 058

REACTIONS (3)
  - Reversible cerebral vasoconstriction syndrome [Recovering/Resolving]
  - Adenomyosis [Recovering/Resolving]
  - Off label use [Unknown]
